FAERS Safety Report 11474718 (Version 1)
Quarter: 2015Q3

REPORT INFORMATION
  Report Type: Spontaneous
  Country: US (occurrence: None)
  Receive Date: 20150908
  Receipt Date: 20150908
  Transmission Date: 20151125
  Serious: Yes (Other)
  Sender: FDA-Public Use
  Company Number: None

PATIENT
  Age: 10 Year
  Sex: Female

DRUGS (1)
  1. GENOTROPIN [Suspect]
     Active Substance: SOMATROPIN
     Indication: DWARFISM
     Dosage: 0.8 MG 7 DAYS A WEEK SUBCUTANEOUSLY
     Route: 058
     Dates: start: 20140811

REACTIONS (1)
  - Epistaxis [None]

NARRATIVE: CASE EVENT DATE: 201508
